FAERS Safety Report 10141821 (Version 3)
Quarter: 2014Q2

REPORT INFORMATION
  Report Type: Spontaneous
  Country: SG (occurrence: SG)
  Receive Date: 20140429
  Receipt Date: 20140502
  Transmission Date: 20141212
  Serious: Yes (Other)
  Sender: FDA-Public Use
  Company Number: SG-009507513-1404SGP006314

PATIENT
  Age: 65 Year
  Sex: Male
  Weight: 60.1 kg

DRUGS (5)
  1. EMEND I.V. POWDER FOR SOLUTION FOR INFUSION 150MG [Suspect]
     Indication: PROPHYLAXIS OF NAUSEA AND VOMITING
     Dosage: 150 MG, SINGLE
     Route: 042
     Dates: start: 20140409, end: 20140409
  2. ZOFRAN [Concomitant]
     Dosage: 8 MG
     Route: 042
  3. DEXAMETHASONE [Concomitant]
     Dosage: 8 MG
     Route: 042
  4. BENADRYL [Concomitant]
     Dosage: 25 MG
     Route: 042
  5. OXALIPLATIN [Concomitant]
     Dosage: 100 MG
     Route: 042

REACTIONS (2)
  - Infusion site urticaria [Recovered/Resolved]
  - Infusion site rash [Recovered/Resolved]
